FAERS Safety Report 24612962 (Version 1)
Quarter: 2024Q4

REPORT INFORMATION
  Report Type: Spontaneous
  Country: US (occurrence: None)
  Receive Date: 20241112
  Receipt Date: 20241112
  Transmission Date: 20250115
  Serious: Yes (Other)
  Sender: Public
  Company Number: None

PATIENT
  Age: 60 Year
  Sex: Male
  Weight: 105.4 kg

DRUGS (2)
  1. AMIODARONE [Suspect]
     Active Substance: AMIODARONE
     Indication: Atrial fibrillation
     Dates: start: 20241028, end: 20241106
  2. AMIODARONE [Suspect]
     Active Substance: AMIODARONE
     Indication: Aortic valve replacement

REACTIONS (5)
  - Eosinophilic pneumonia [None]
  - Acute respiratory distress syndrome [None]
  - Lung consolidation [None]
  - Hypervolaemia [None]
  - Pleural effusion [None]

NARRATIVE: CASE EVENT DATE: 20241029
